FAERS Safety Report 5726846-5 (Version None)
Quarter: 2008Q2

REPORT INFORMATION
  Report Type: 
  Country: None (occurrence: None)
  Receive Date: 20080502
  Receipt Date: 20080423
  Transmission Date: 20081010
  Serious: Yes (Hospitalization)
  Sender: FDA-Public Use
  Company Number: GB-ABBOTT-08P-167-0448821-00

PATIENT
  Sex: Female

DRUGS (3)
  1. VALPROIC ACID [Suspect]
     Indication: COMPLEX PARTIAL SEIZURES
  2. FOLIC ACID [Concomitant]
     Indication: PROPHYLAXIS
     Route: 048
  3. FOLIC ACID [Concomitant]

REACTIONS (1)
  - PREGNANCY INDUCED HYPERTENSION [None]
